FAERS Safety Report 5993806-9 (Version None)
Quarter: 2008Q4

REPORT INFORMATION
  Report Type: 
  Country: None (occurrence: None)
  Receive Date: 20081212
  Receipt Date: 20081201
  Transmission Date: 20090506
  Serious: Yes (Death)
  Sender: FDA-Public Use
  Company Number: CA-BAXTER-2008BH013271

PATIENT
  Sex: Female

DRUGS (3)
  1. DIANEAL [Suspect]
     Indication: MULTIPLE MYELOMA
     Route: 033
     Dates: end: 20081130
  2. EXTRANEAL [Suspect]
     Indication: MULTIPLE MYELOMA
     Route: 033
     Dates: start: 20080801
  3. EXTRANEAL [Suspect]
     Route: 033
     Dates: end: 20080801

REACTIONS (1)
  - MULTIPLE MYELOMA [None]
